FAERS Safety Report 4344860-1 (Version None)
Quarter: 2004Q2

REPORT INFORMATION
  Report Type: 
  Country: None (occurrence: None)
  Receive Date: 20040423
  Receipt Date: 20030509
  Transmission Date: 20050107
  Serious: Yes (Other)
  Sender: FDA-Public Use
  Company Number: US-GLAXOSMITHKLINE-A0407871A

PATIENT
  Sex: Female

DRUGS (2)
  1. ZOFRAN [Suspect]
     Dosage: 4MG SINGLE DOSE
     Route: 042
  2. UNSPECIFIED MEDICATIONS [Concomitant]

REACTIONS (2)
  - DYSTONIA [None]
  - OCULOGYRATION [None]
